FAERS Safety Report 15062086 (Version 1)
Quarter: 2018Q2

REPORT INFORMATION
  Report Type: Spontaneous
  Country: JP (occurrence: JP)
  Receive Date: 20180625
  Receipt Date: 20180625
  Transmission Date: 20180711
  Serious: Yes (Hospitalization, Other)
  Sender: FDA-Public Use
  Company Number: JP-SUCAMPO PHARMACEUTICALS INC.-SPI201800641

PATIENT
  Sex: Male

DRUGS (1)
  1. AMITIZA [Suspect]
     Active Substance: LUBIPROSTONE
     Indication: CONSTIPATION
     Dosage: 24 UNK, UNK
     Route: 048
     Dates: start: 20180511, end: 20180512

REACTIONS (4)
  - Spinal fracture [Unknown]
  - Syncope [Unknown]
  - Sternal fracture [Unknown]
  - Fall [Unknown]

NARRATIVE: CASE EVENT DATE: 20180512
